FAERS Safety Report 21588968 (Version 1)
Quarter: 2022Q4

REPORT INFORMATION
  Report Type: Other
  Country: PL (occurrence: PL)
  Receive Date: 20221114
  Receipt Date: 20221114
  Transmission Date: 20230112
  Serious: Yes (Other)
  Sender: FDA-Public Use
  Company Number: PL-PFIZER INC-PV202200095377

PATIENT
  Age: 58 Year
  Sex: Male

DRUGS (2)
  1. RITUXIMAB [Suspect]
     Active Substance: RITUXIMAB
     Indication: Chronic lymphocytic leukaemia
     Dosage: 1000 MG
     Route: 042
     Dates: start: 202112
  2. RITUXIMAB [Suspect]
     Active Substance: RITUXIMAB
     Dosage: 5TH DOSE
     Route: 042
     Dates: start: 202112

REACTIONS (1)
  - Anaphylactic shock [Unknown]
